FAERS Safety Report 9895753 (Version 1)
Quarter: 2014Q1

REPORT INFORMATION
  Report Type: Spontaneous
  Country: US (occurrence: US)
  Receive Date: 20140213
  Receipt Date: 20140213
  Transmission Date: 20141002
  Serious: No
  Sender: FDA-Public Use
  Company Number: US-BRISTOL-MYERS SQUIBB COMPANY-19002591

PATIENT
  Age: 53 Year
  Sex: Male
  Weight: 147.39 kg

DRUGS (12)
  1. ABATACEPT SUBQ INJECTION 125MG/ML [Suspect]
     Route: 058
  2. CALCIUM [Concomitant]
     Dosage: 1 DF=600 TAB D
  3. FISH OIL [Concomitant]
     Dosage: CAPS
  4. LYRICA [Concomitant]
     Dosage: CAPS
  5. SULFASALAZINE [Concomitant]
     Dosage: TAB DR
  6. RANITIDINE HCL TABS 150MG [Concomitant]
  7. MELATONIN [Concomitant]
     Dosage: CAPS
  8. TYLENOL [Concomitant]
     Dosage: TABS
  9. SIMVASTATIN [Concomitant]
     Dosage: TABS
  10. TIZANIDINE [Concomitant]
     Dosage: CAPS
  11. PREDNISONE [Concomitant]
     Dosage: TABS
  12. COUMADIN TABS 1 MG [Concomitant]

REACTIONS (1)
  - Rash [Unknown]
